FAERS Safety Report 20715466 (Version 2)
Quarter: 2022Q2

REPORT INFORMATION
  Report Type: Report from Study
  Country: ES (occurrence: ES)
  Receive Date: 20220415
  Receipt Date: 20220504
  Transmission Date: 20220721
  Serious: Yes (Other)
  Sender: FDA-Public Use
  Company Number: ES-GRUNENTHAL-2022-100082

PATIENT
  Age: 65 Year
  Sex: Female

DRUGS (1)
  1. QUTENZA [Suspect]
     Active Substance: CAPSAICIN
     Indication: Neuralgia
     Dosage: 179 MILLIGRAM
     Route: 062
     Dates: start: 20211019, end: 20211019

REACTIONS (2)
  - Thyroid mass [Unknown]
  - Drug ineffective [Not Recovered/Not Resolved]

NARRATIVE: CASE EVENT DATE: 20211019
